FAERS Safety Report 20772990 (Version 3)
Quarter: 2022Q2

REPORT INFORMATION
  Report Type: Spontaneous
  Country: US (occurrence: US)
  Receive Date: 20220502
  Receipt Date: 20220509
  Transmission Date: 20220721
  Serious: No
  Sender: FDA-Public Use
  Company Number: US-AIMMUNE THERAPEUTICS, INC.-2022AIMT00352

PATIENT

DRUGS (6)
  1. PALFORZIA [Suspect]
     Active Substance: PEANUT
     Indication: Food allergy
     Dosage: INITIAL DOSE ESCALATION (IDE)
     Route: 048
     Dates: start: 20220414, end: 20220414
  2. PALFORZIA [Suspect]
     Active Substance: PEANUT
     Dosage: 1 MG (IDE), ONCE, LAST DOSE PRIOR THROAT ISSUES
     Route: 048
     Dates: start: 20220414, end: 20220414
  3. PALFORZIA [Suspect]
     Active Substance: PEANUT
     Dosage: 1.5 MG (IDE), ONCE, LAST DOSE PRIOR ABDOMINAL PAIN
     Route: 048
     Dates: start: 20220414, end: 20220414
  4. CLARAVIS [Concomitant]
     Active Substance: ISOTRETINOIN
     Indication: Product used for unknown indication
     Dosage: 40 MG
  5. ALBUTEROL SULFATE [Concomitant]
     Active Substance: ALBUTEROL SULFATE
     Indication: Product used for unknown indication
  6. CETIRIZINE [Concomitant]
     Active Substance: CETIRIZINE HYDROCHLORIDE
     Indication: Product used for unknown indication
     Dosage: 10 MG

REACTIONS (2)
  - Throat irritation [Recovered/Resolved]
  - Abdominal pain upper [Recovered/Resolved]

NARRATIVE: CASE EVENT DATE: 20220414
